FAERS Safety Report 8428903 (Version 2)
Quarter: 2012Q4

REPORT INFORMATION
  Report Type: 
  Country: JP (occurrence: JP)
  Receive Date: 20120227
  Receipt Date: 20121220
  Transmission Date: 20130627
  Serious: Yes (Other)
  Sender: FDA-Public Use
  Company Number: JP-GLAXOSMITHKLINE-B0779134A

PATIENT
  Age: 9 Year
  Sex: Male
  Weight: 27 kg

DRUGS (4)
  1. RELENZA [Suspect]
     Indication: INFLUENZA
     Dosage: 10MG Twice per day
     Route: 055
     Dates: start: 20120130
  2. MUCODYNE [Concomitant]
     Indication: INFLUENZA
     Dosage: 250MG Three times per day
     Route: 048
     Dates: start: 20120128, end: 20120204
  3. ASVERIN (TIPEPIDINE HIBENZATE) [Concomitant]
     Indication: INFLUENZA
     Dosage: 20MG Three times per day
     Route: 048
     Dates: start: 20120128, end: 20120204
  4. POLARAMINE [Concomitant]
     Indication: INFLUENZA
     Dosage: 2MG Twice per day
     Route: 048
     Dates: start: 20120128, end: 20120204

REACTIONS (2)
  - Hallucination, visual [Recovered/Resolved]
  - Abnormal behaviour [Recovered/Resolved]
